APPROVED DRUG PRODUCT: LIPTRUZET
Active Ingredient: ATORVASTATIN CALCIUM; EZETIMIBE
Strength: EQ 40MG BASE;10MG **Federal Register determination that product was not discontinued or withdrawn for safety or effectiveness reasons**
Dosage Form/Route: TABLET;ORAL
Application: N200153 | Product #003
Applicant: ORGANON LLC A SUB OF ORGANON AND CO
Approved: May 3, 2013 | RLD: Yes | RS: No | Type: DISCN